FAERS Safety Report 12678613 (Version 1)
Quarter: 2016Q3

REPORT INFORMATION
  Report Type: Spontaneous
  Country: ID (occurrence: ID)
  Receive Date: 20160823
  Receipt Date: 20160823
  Transmission Date: 20161109
  Serious: Yes (Death, Life-Threatening, Hospitalization)
  Sender: FDA-Public Use
  Company Number: ID-ASTRAZENECA-2016SE89896

PATIENT

DRUGS (2)
  1. TIGECYCLINE. [Suspect]
     Active Substance: TIGECYCLINE
     Route: 065
  2. MERONEM [Suspect]
     Active Substance: MEROPENEM
     Route: 042

REACTIONS (2)
  - White blood cell count increased [Unknown]
  - Drug ineffective [Fatal]
